FAERS Safety Report 10299830 (Version 1)
Quarter: 2014Q3

REPORT INFORMATION
  Report Type: Spontaneous
  Country: BR (occurrence: BR)
  Receive Date: 20140711
  Receipt Date: 20140711
  Transmission Date: 20150326
  Serious: Yes (Hospitalization, Other)
  Sender: FDA-Public Use
  Company Number: BR-ABBVIE-14P-020-1257060-00

PATIENT
  Sex: Male
  Weight: 77 kg

DRUGS (3)
  1. HUMIRA [Suspect]
     Active Substance: ADALIMUMAB
     Indication: PSORIATIC ARTHROPATHY
     Dosage: INDUCTION DOSE
     Route: 058
     Dates: start: 2011
  2. HUMIRA [Suspect]
     Active Substance: ADALIMUMAB
     Route: 058
  3. HUMIRA [Suspect]
     Active Substance: ADALIMUMAB
     Route: 058

REACTIONS (10)
  - Umbilical hernia [Recovered/Resolved]
  - Arthralgia [Not Recovered/Not Resolved]
  - Red blood cell abnormality [Unknown]
  - Prostatomegaly [Recovering/Resolving]
  - Palpitations [Not Recovered/Not Resolved]
  - Throat irritation [Recovered/Resolved]
  - Immunodeficiency [Recovered/Resolved]
  - Abdominal adhesions [Recovered/Resolved]
  - Gallbladder disorder [Recovered/Resolved]
  - Influenza [Recovered/Resolved]
